FAERS Safety Report 24126285 (Version 1)
Quarter: 2024Q3

REPORT INFORMATION
  Report Type: Spontaneous
  Country: JP (occurrence: JP)
  Receive Date: 20240723
  Receipt Date: 20240723
  Transmission Date: 20241016
  Serious: Yes (Death)
  Sender: ELI LILLY AND CO
  Company Number: JP-ELI_LILLY_AND_COMPANY-JP202407012271

PATIENT
  Age: 17 Day
  Sex: Female

DRUGS (7)
  1. HUMULIN R [Suspect]
     Active Substance: INSULIN HUMAN
     Indication: Hyperglycaemia
     Dosage: UNK
     Route: 041
     Dates: start: 20230717
  2. HYDROCORTISONE [Suspect]
     Active Substance: HYDROCORTISONE\HYDROCORTISONE ACETATE
     Indication: Bronchopulmonary dysplasia
     Dosage: UNK, TID
     Route: 042
     Dates: start: 20230711, end: 20230721
  3. BETAMETHASONE [Suspect]
     Active Substance: BETAMETHASONE\BETAMETHASONE DIPROPIONATE
     Indication: Bronchopulmonary dysplasia
     Dosage: UNK, BID
     Route: 042
     Dates: start: 20230721
  4. DOBUTAMINE [Suspect]
     Active Substance: DOBUTAMINE HYDROCHLORIDE
     Indication: Product used for unknown indication
     Dosage: UNK
     Route: 042
     Dates: start: 20230711
  5. INDOMETHACIN [Concomitant]
     Active Substance: INDOMETHACIN
     Dosage: 0.1 MG, SINGLE
     Route: 041
     Dates: start: 20230711
  6. FENTANYL [Concomitant]
     Active Substance: FENTANYL\FENTANYL CITRATE
     Dosage: UNK
     Route: 041
     Dates: start: 20230711, end: 20230715
  7. DOPAMINE [Concomitant]
     Active Substance: DOPAMINE HYDROCHLORIDE
     Dosage: UNK
     Route: 041
     Dates: start: 20230711, end: 20230801

REACTIONS (2)
  - Circulatory collapse [Fatal]
  - Cardiac hypertrophy [Fatal]

NARRATIVE: CASE EVENT DATE: 20230727
